FAERS Safety Report 23106434 (Version 2)
Quarter: 2023Q4

REPORT INFORMATION
  Report Type: Report from Study
  Country: US (occurrence: US)
  Receive Date: 20231025
  Receipt Date: 20231026
  Transmission Date: 20240109
  Serious: Yes (Death)
  Sender: FDA-Public Use
  Company Number: US-ABBVIE-5330721

PATIENT
  Sex: Male

DRUGS (25)
  1. VENCLEXTA [Suspect]
     Active Substance: VENETOCLAX
     Indication: Pancytopenia
     Dosage: STRENGTH: 100 MG?TAKE 1 TABLET BY MOUTH (100MG) DAILY?FIRST ADMIN DATE: 2023
     Route: 048
  2. VENCLEXTA [Suspect]
     Active Substance: VENETOCLAX
     Indication: Pancytopenia
     Dosage: 10 MG, 50 MG TABLET?TAKE 2 TABLET(S) (20MG) BY MOUTH ON DAY 1 AND THEN TAKE 5 TABLET(S) (50MG) BY...
     Route: 048
     Dates: start: 20230524
  3. VENCLEXTA [Suspect]
     Active Substance: VENETOCLAX
     Indication: Pancytopenia
     Dosage: 10 MG TABLET?TAKE 20 MG BY MOUTH DAILY FOR 1 DAY,?FIRST ADMIN DATE: 2023?LAST ADMIN DATE: 2023
     Route: 048
  4. VENCLEXTA [Suspect]
     Active Substance: VENETOCLAX
     Indication: Pancytopenia
     Dosage: 50 MG TABLET?THEN 50 MG DAILY FOR 1 DAY,?FIRST ADMIN DATE: 2023?LAST ADMIN DATE: 2023
     Route: 048
  5. VENCLEXTA [Suspect]
     Active Substance: VENETOCLAX
     Indication: Pancytopenia
     Dosage: 100 MG TABLET?THEN 100 MG DAILY?FIRST ADMIN DATE: 2023?LAST ADMIN DATE: 2023
     Route: 048
  6. IRON [Concomitant]
     Active Substance: IRON
     Indication: Product used for unknown indication
     Dosage: 18-400 MG- MCG TABLET?ORAL TABLET TAKE 1 CAPSULE BY MOUTH DAILY
     Route: 048
  7. FOLIC ACID [Concomitant]
     Active Substance: FOLIC ACID
     Indication: Product used for unknown indication
     Dosage: 18-400 MG- MCG TABLET?ORAL TABLET TAKE 1 CAPSULE BY MOUTH DAILY
     Route: 048
  8. ZOFRAN [Concomitant]
     Active Substance: ONDANSETRON HYDROCHLORIDE
     Indication: Nausea
     Dosage: 8 MG TABLET?TAKE 8MG BY MOUTH EVERY 8 HOURS AS NEEDED FOR CHEMO- INDUCED NAUSEA
     Route: 048
  9. ROXICODONE [Concomitant]
     Active Substance: OXYCODONE HYDROCHLORIDE
     Indication: Pain management
     Dosage: 5 MG IMMEDIATE RELEASE TABLET?TAKE 1 TABLET BY MOUTH EVERY 6 HOURS IF NEEDED FOR PAIN
     Route: 048
  10. MIRALAX [Concomitant]
     Active Substance: POLYETHYLENE GLYCOL 3350
     Indication: Product used for unknown indication
     Dosage: 17 GRAM/DOSE ORAL POWDER?TAKE BY MOUTH AS NEEDED
     Route: 048
  11. NOXAFIL [Concomitant]
     Active Substance: POSACONAZOLE
     Indication: Product used for unknown indication
     Dosage: 100 MG DELAYED-RELEASE TABLET?TAKE 3 TABLETS (300 MG TOTAL) BY MOUTH DAILY TAKE WITH FOOD, SWALLO...
     Route: 048
  12. DELTASONE [Concomitant]
     Active Substance: PREDNISONE
     Indication: Product used for unknown indication
     Dosage: 10 MG TABLET?TAKE TABLET BY MOUTH DAILY, MAY INCREASE TO 2 TABS DAILY FOR? (REFER TO PRESCRIPTION...
     Route: 048
  13. COMPAZINE [Concomitant]
     Active Substance: PROCHLORPERAZINE MALEATE
     Indication: Nausea
     Dosage: 10 MG TABLET?TAKE 10MG BY MOUTH EVERY 6 HOURS AS NEEDED FOR CHEMO- INDUCED NAUSEA
     Route: 048
  14. TYLENOL [Concomitant]
     Active Substance: ACETAMINOPHEN
     Indication: Product used for unknown indication
     Dosage: TAKE 1-1.5 TABLETS(325-487.5 MG TOTAL) BY MOUTH EVERY 6 (SIX) HOURS AS NEEDED?325 MG TABLET
     Route: 048
  15. PLAVIX [Concomitant]
     Active Substance: CLOPIDOGREL BISULFATE
     Indication: Product used for unknown indication
     Dosage: 75 MG TABLET?TAKE 1 TABLET (75 MG TOTAL) BY MOUTH DAILY
     Route: 048
  16. VITAMIN B12 [Concomitant]
     Active Substance: CYANOCOBALAMIN
     Indication: Product used for unknown indication
     Dosage: 1000 MCG TABLET?TAKE 1 TABLET (1,000 MCG TOTAL) BY MOUTH DAILY
     Route: 048
  17. FOLVITE [Concomitant]
     Active Substance: FOLIC ACID
     Indication: Product used for unknown indication
     Dosage: 1 MG TABLET
  18. ATARAX [Concomitant]
     Active Substance: HYDROXYZINE HYDROCHLORIDE
     Indication: Anxiety
     Dosage: TAKE 1 TABLET (25 MG TOTAL) BY MOUTH 2 (TWO) TIMES DAILY AS NEEDED FOR ANXIETY
     Route: 048
  19. KEPPRA [Concomitant]
     Active Substance: LEVETIRACETAM
     Indication: Product used for unknown indication
     Dosage: 500 MG TABLET?TAKE 1 TABLET (500 MG TOTAL) BY MOUTH TWICE A DAY
     Route: 048
  20. LEVAQUIN [Concomitant]
     Active Substance: LEVOFLOXACIN
     Indication: Product used for unknown indication
     Dosage: 500 MG TABLET?TAKE 1 TABLET (500 MG TOTAL) BY MOUTH DAILY FOR 120 DOSES
     Route: 048
  21. PRINIVIL [Concomitant]
     Active Substance: LISINOPRIL
     Indication: Product used for unknown indication
     Dosage: 20 MG TABLET?TAKE 1 TABLET (20 MG TOTAL) BY MOUTH DAILY
     Route: 048
  22. ZESTRIL [Concomitant]
     Active Substance: LISINOPRIL
     Indication: Product used for unknown indication
     Dosage: 20 MG TABLET?TAKE 1 TABLET (20 MG TOTAL) BY MOUTH DAILY
     Route: 048
  23. ATIVAN [Concomitant]
     Active Substance: LORAZEPAM
     Indication: Anxiety
     Dosage: TIME INTERVAL: 0.33333333 DAYS: 0.5 MG TABLET?TAKE 1 TABLET (0.5 MG TOTAL) BY MOUTH 3 (THREE) TIM...
  24. CITRUCEL [Concomitant]
     Active Substance: METHYLCELLULOSE (4000 CPS)\METHYLCELLULOSE (4000 MPA.S)
     Indication: Product used for unknown indication
     Dosage: MIX 1 SCOOP WITH 4 TO 8 OUNCES OF JUICE OR WATER END DRINK ONCE DAILY
  25. SUCROSE [Concomitant]
     Active Substance: SUCROSE
     Indication: Product used for unknown indication
     Dosage: MIX 1 SCOOP WITH 4 TO 8 OUNCES OF JUICE OR WATER END DRINK ONCE DAILY

REACTIONS (2)
  - Death [Fatal]
  - Off label use [Unknown]

NARRATIVE: CASE EVENT DATE: 20230101
